FAERS Safety Report 12286462 (Version 1)
Quarter: 2016Q2

REPORT INFORMATION
  Report Type: Spontaneous
  Country: US (occurrence: US)
  Receive Date: 20160420
  Receipt Date: 20160420
  Transmission Date: 20160815
  Serious: Yes (Other)
  Sender: FDA-Public Use
  Company Number: US-INDIANA BOTANIC GARDENS, INC.-1050758

PATIENT
  Sex: Female

DRUGS (2)
  1. HOMEOPATHIC LOW BACK PAIN FORMULA [Suspect]
     Active Substance: HOMEOPATHICS
  2. UNSPECIFIED BLOOD PRESSURE MEDICATION [Concomitant]
     Active Substance: UNSPECIFIED INGREDIENT

REACTIONS (1)
  - Blood pressure increased [Recovered/Resolved]
